FAERS Safety Report 6047396-5 (Version None)
Quarter: 2009Q1

REPORT INFORMATION
  Report Type: 
  Country: None (occurrence: None)
  Receive Date: 20090122
  Receipt Date: 20090121
  Transmission Date: 20090719
  Serious: No
  Sender: FDA-Public Use
  Company Number: US-B.I. PHARMACEUTICALS,INC./RIDGEFIELD-2009-BP-00449BP

PATIENT
  Sex: Male

DRUGS (7)
  1. COMBIVENT [Suspect]
     Indication: DYSPNOEA
     Dosage: 6PUF
     Route: 055
     Dates: start: 20090105
  2. DILTIAZEM [Concomitant]
  3. COUMADIN [Concomitant]
     Indication: BLOOD VISCOSITY INCREASED
  4. WELLBUTRIN [Concomitant]
  5. MONOPRIL [Concomitant]
  6. THYROID TAB [Concomitant]
  7. LASIX [Concomitant]

REACTIONS (1)
  - DRUG INEFFECTIVE FOR UNAPPROVED INDICATION [None]
